FAERS Safety Report 17371236 (Version 1)
Quarter: 2020Q1

REPORT INFORMATION
  Report Type: Spontaneous
  Country: US (occurrence: US)
  Receive Date: 20200121
  Receipt Date: 20200121
  Transmission Date: 20200409
  Serious: Yes (Death)
  Sender: FDA-Public Use
  Company Number: None

PATIENT
  Age: 76 Year
  Sex: Male

DRUGS (1)
  1. SANDOSTATIN LAR DEPOT [Suspect]
     Active Substance: OCTREOTIDE ACETATE
     Indication: ARTERIOVENOUS MALFORMATION
     Dosage: ?          OTHER FREQUENCY:EVERY 28 DAYS;?
     Route: 030
     Dates: start: 201911, end: 201912

REACTIONS (1)
  - Death [None]

NARRATIVE: CASE EVENT DATE: 20200112
